FAERS Safety Report 5225716-9 (Version None)
Quarter: 2007Q1

REPORT INFORMATION
  Report Type: 
  Country: None (occurrence: None)
  Receive Date: 20070131
  Receipt Date: 20070130
  Transmission Date: 20070707
  Serious: Yes (Hospitalization)
  Sender: FDA-Public Use
  Company Number: FR-ABBOTT-07P-056-0357534-00

PATIENT
  Age: 28 Year
  Sex: Male

DRUGS (4)
  1. DEPAKOTE [Suspect]
     Indication: DEPRESSION
     Route: 048
     Dates: start: 20061219, end: 20061219
  2. DEPAKOTE [Suspect]
     Route: 048
  3. CITALOPRAM HYDROBROMIDE [Concomitant]
     Indication: DEPRESSION
     Route: 065
  4. ALPRAZOLAM [Concomitant]
     Indication: DEPRESSION
     Route: 065

REACTIONS (6)
  - COMA [None]
  - HYPERKALAEMIA [None]
  - INTENTIONAL OVERDOSE [None]
  - PNEUMONIA KLEBSIELLA [None]
  - PNEUMONIA STAPHYLOCOCCAL [None]
  - THROMBOCYTOPENIA [None]
